FAERS Safety Report 9334465 (Version 1)
Quarter: 2013Q2

REPORT INFORMATION
  Report Type: Spontaneous
  Country: US (occurrence: US)
  Receive Date: 20130606
  Receipt Date: 20130606
  Transmission Date: 20140414
  Serious: No
  Sender: FDA-Public Use
  Company Number: US-AMGEN-USASP2013028491

PATIENT
  Age: 71 Year
  Sex: Female
  Weight: 92.98 kg

DRUGS (15)
  1. PROLIA [Suspect]
     Indication: OSTEOPOROSIS POSTMENOPAUSAL
     Dosage: 60 MG, Q6MO
     Route: 058
     Dates: start: 20121227
  2. MECLIZINE                          /00072801/ [Concomitant]
     Indication: VERTIGO
     Dosage: 25 MG, TID
  3. OMEPRAZOLE [Concomitant]
  4. METFORMIN [Concomitant]
     Indication: DIABETES MELLITUS
     Dosage: UNK, BID
  5. GLIPIZIDE ER [Concomitant]
     Indication: DIABETES MELLITUS
     Dosage: 20 MG, BID
  6. CITALOPRAM [Concomitant]
     Dosage: 20 MG, QD
  7. LISINOPRIL [Concomitant]
     Dosage: 5 MG, QD
  8. CALCIUM [Concomitant]
  9. MULTIVITAMIN                       /00097801/ [Concomitant]
  10. HYDROXYZINE PAMOATE [Concomitant]
  11. DIAZEPAM [Concomitant]
     Indication: RESTLESS LEGS SYNDROME
     Dosage: 5 MG, TID
  12. PRAVASTATIN SODIUM [Concomitant]
     Dosage: 40 MG, BID
     Route: 048
  13. ASPIRIN LOW [Concomitant]
     Dosage: 81 MG, QD
     Route: 048
  14. PROMETHAZINE HYDROCHLORIDE [Concomitant]
  15. HYDROCODONE W/ACETAMINOPHEN [Concomitant]
     Dosage: UNK

REACTIONS (2)
  - Burning sensation [Unknown]
  - Arthralgia [Unknown]
